FAERS Safety Report 12544012 (Version 1)
Quarter: 2016Q3

REPORT INFORMATION
  Report Type: Spontaneous
  Country: US (occurrence: US)
  Receive Date: 20160711
  Receipt Date: 20160711
  Transmission Date: 20161109
  Serious: Yes (Other)
  Sender: FDA-Public Use
  Company Number: US-GLAXOSMITHKLINE-US2016GSK092516

PATIENT
  Sex: Male

DRUGS (1)
  1. TANZEUM [Suspect]
     Active Substance: ALBIGLUTIDE
     Indication: PRODUCT USED FOR UNKNOWN INDICATION
     Dosage: UNK, WE
     Dates: start: 201605

REACTIONS (5)
  - Decreased appetite [Unknown]
  - Pancreatitis relapsing [Unknown]
  - Abdominal discomfort [Unknown]
  - Food aversion [Unknown]
  - Vomiting [Unknown]

NARRATIVE: CASE EVENT DATE: 2016
